FAERS Safety Report 4557896-2 (Version None)
Quarter: 2005Q1

REPORT INFORMATION
  Report Type: 
  Country: None (occurrence: None)
  Receive Date: 20050121
  Receipt Date: 20040115
  Transmission Date: 20050727
  Serious: No
  Sender: FDA-Public Use
  Company Number: US-BRISTOL-MYERS SQUIBB COMPANY-12479481

PATIENT
  Sex: Female

DRUGS (1)
  1. SERZONE [Suspect]
     Dates: start: 19970101, end: 20000101

REACTIONS (11)
  - ANXIETY [None]
  - CONFUSIONAL STATE [None]
  - CONSTIPATION [None]
  - DEPRESSION [None]
  - DIZZINESS [None]
  - HEPATIC ENZYME INCREASED [None]
  - INSOMNIA [None]
  - NAUSEA [None]
  - NIGHT SWEATS [None]
  - PANIC ATTACK [None]
  - VISION BLURRED [None]
